FAERS Safety Report 8454902 (Version 2)
Quarter: 2013Q4

REPORT INFORMATION
  Report Type: Spontaneous
  Country: US (occurrence: US)
  Receive Date: 20120312
  Receipt Date: 20131023
  Transmission Date: 20140711
  Serious: Yes (Other)
  Sender: FDA-Public Use
  Company Number: US-ROCHE-793915

PATIENT
  Sex: Male
  Weight: 81.72 kg

DRUGS (2)
  1. ACCUTANE [Suspect]
     Indication: ACNE
     Route: 065
     Dates: start: 19980401, end: 20000228
  2. ACCUTANE [Suspect]
     Route: 065

REACTIONS (8)
  - Inflammatory bowel disease [Unknown]
  - Irritable bowel syndrome [Unknown]
  - Anaemia [Unknown]
  - Lip dry [Unknown]
  - Cheilitis [Unknown]
  - Acne [Unknown]
  - Transaminases increased [Unknown]
  - Blood triglycerides increased [Unknown]
